FAERS Safety Report 15620173 (Version 1)
Quarter: 2018Q4

REPORT INFORMATION
  Report Type: Spontaneous
  Country: US (occurrence: US)
  Receive Date: 20181115
  Receipt Date: 20181115
  Transmission Date: 20190205
  Serious: No
  Sender: FDA-Public Use
  Company Number: US-LUPIN PHARMACEUTICALS INC.-2018-07307

PATIENT
  Age: 52 Year
  Sex: Female
  Weight: 86.17 kg

DRUGS (1)
  1. DULOXETINE DELAYED-RELEASE CAPSULES 40 MG [Suspect]
     Active Substance: DULOXETINE
     Indication: DEPRESSION
     Dosage: 40 MG, QD
     Route: 048
     Dates: start: 201809, end: 201809

REACTIONS (5)
  - Drug ineffective [Unknown]
  - Premenstrual syndrome [Recovering/Resolving]
  - Pallor [Recovering/Resolving]
  - Depression [Unknown]
  - Abdominal pain [Recovering/Resolving]

NARRATIVE: CASE EVENT DATE: 201809
